FAERS Safety Report 7495757-X (Version None)
Quarter: 2011Q2

REPORT INFORMATION
  Report Type: 
  Country: None (occurrence: None)
  Receive Date: 20110523
  Receipt Date: 20110513
  Transmission Date: 20111010
  Serious: Yes (Hospitalization)
  Sender: FDA-Public Use
  Company Number: CA-ELI_LILLY_AND_COMPANY-CA201105003783

PATIENT
  Sex: Male

DRUGS (10)
  1. ZYPREXA [Suspect]
     Dosage: 5 MG, QD
  2. WELLBUTRIN [Concomitant]
  3. TRAZODONE HCL [Concomitant]
  4. LORAZEPAM [Concomitant]
  5. MONOPRIL [Concomitant]
  6. ZYPREXA [Suspect]
     Dosage: 2.5 MG, QD
  7. PAXIL [Concomitant]
  8. ELAVIL [Concomitant]
  9. PERCOCET [Concomitant]
  10. FLURBIPROFEN [Concomitant]

REACTIONS (10)
  - PANCREATITIS [None]
  - RENAL FAILURE [None]
  - HYPERGLYCAEMIA [None]
  - DIABETES MELLITUS [None]
  - WEIGHT INCREASED [None]
  - PNEUMONIA [None]
  - SEPSIS [None]
  - ABDOMINAL HERNIA [None]
  - RECTAL HAEMORRHAGE [None]
  - HYPERLIPIDAEMIA [None]
